FAERS Safety Report 6123656-4 (Version None)
Quarter: 2009Q1

REPORT INFORMATION
  Report Type: 
  Country: None (occurrence: None)
  Receive Date: 20090317
  Receipt Date: 20090309
  Transmission Date: 20090719
  Serious: Yes (Death, Hospitalization)
  Sender: FDA-Public Use
  Company Number: THQ2009A01084

PATIENT

DRUGS (3)
  1. LANSOPRAZOLE [Suspect]
  2. CEFTRIAXONE [Suspect]
  3. TRIMETHOPRM [Suspect]

REACTIONS (1)
  - CLOSTRIDIAL INFECTION [None]
